FAERS Safety Report 17424883 (Version 1)
Quarter: 2020Q1

REPORT INFORMATION
  Report Type: Spontaneous
  Country: FR (occurrence: FR)
  Receive Date: 20200217
  Receipt Date: 20200217
  Transmission Date: 20200409
  Serious: Yes (Hospitalization)
  Sender: FDA-Public Use
  Company Number: FR-ACCORD-172665

PATIENT
  Age: 46 Year
  Sex: Male
  Weight: 81.3 kg

DRUGS (3)
  1. CARBOPLATIN ACCORD [Suspect]
     Active Substance: CARBOPLATIN
     Indication: SMALL CELL LUNG CANCER
     Route: 041
     Dates: start: 20191107, end: 20200101
  2. TECENTRIQ [Suspect]
     Active Substance: ATEZOLIZUMAB
     Indication: SMALL CELL LUNG CANCER
     Dosage: STRENGTH: 1200 MG
     Route: 041
     Dates: start: 20191107, end: 20191202
  3. ETOPOSIDE TEVA [Suspect]
     Active Substance: ETOPOSIDE
     Indication: SMALL CELL LUNG CANCER
     Route: 041
     Dates: start: 20191107, end: 20200103

REACTIONS (4)
  - Weight decreased [Recovering/Resolving]
  - Vomiting [Recovered/Resolved]
  - Hepatocellular injury [Not Recovered/Not Resolved]
  - Diarrhoea [Recovered/Resolved]

NARRATIVE: CASE EVENT DATE: 20191223
